FAERS Safety Report 8899063 (Version 2)
Quarter: 2013Q1

REPORT INFORMATION
  Report Type: Spontaneous
  Country: US (occurrence: US)
  Receive Date: 20121109
  Receipt Date: 20130102
  Transmission Date: 20140127
  Serious: Yes (Other)
  Sender: FDA-Public Use
  Company Number: US-BAYER-2012-114680

PATIENT
  Age: 21 Year
  Sex: Female

DRUGS (1)
  1. MIRENA [Suspect]
     Indication: CONTRACEPTION
     Dosage: 20 MCG/24HR, CONT
     Route: 015
     Dates: start: 20111228

REACTIONS (7)
  - Feeling abnormal [None]
  - Feeling abnormal [None]
  - Discomfort [None]
  - Feeling jittery [None]
  - Mood swings [None]
  - Metrorrhagia [None]
  - Device dislocation [None]
